FAERS Safety Report 9224739 (Version 1)
Quarter: 2013Q2

REPORT INFORMATION
  Report Type: Spontaneous
  Country: US (occurrence: None)
  Receive Date: 20130409
  Receipt Date: 20130409
  Transmission Date: 20140414
  Serious: Yes (Disabling, Other)
  Sender: FDA-Public Use
  Company Number: None

PATIENT
  Age: 42 Year
  Sex: Male
  Weight: 68.04 kg

DRUGS (1)
  1. ENDOCET [Suspect]
     Indication: PSORIATIC ARTHROPATHY
     Dosage: 10/650 22D Q6HRS ORAL?A COUPLE YEARS
     Route: 048

REACTIONS (4)
  - Product substitution issue [None]
  - Product formulation issue [None]
  - Drug effect decreased [None]
  - Pain [None]
